FAERS Safety Report 23800673 (Version 1)
Quarter: 2024Q2

REPORT INFORMATION
  Report Type: Spontaneous
  Country: US (occurrence: US)
  Receive Date: 20240430
  Receipt Date: 20240430
  Transmission Date: 20240715
  Serious: Yes (Hospitalization)
  Sender: FDA-Public Use
  Company Number: US-MALLINCKRODT-MNK202402847

PATIENT
  Age: 67 Year
  Sex: Female

DRUGS (4)
  1. UVADEX [Suspect]
     Active Substance: METHOXSALEN
     Indication: Sjogren^s syndrome
     Dosage: UNKNOWN
     Route: 050
     Dates: start: 2020
  2. UVADEX [Suspect]
     Active Substance: METHOXSALEN
     Indication: Sjogren^s syndrome
  3. AZATHIOPRINE [Concomitant]
     Active Substance: AZATHIOPRINE
     Indication: Sjogren^s syndrome
     Dosage: UNKNOWN
  4. CEVIMELINE [Concomitant]
     Active Substance: CEVIMELINE
     Indication: Sjogren^s syndrome
     Dosage: UNKNOWN

REACTIONS (7)
  - Septic shock [Unknown]
  - Empyema [Recovering/Resolving]
  - Interstitial lung disease [Unknown]
  - Condition aggravated [Unknown]
  - Pleural effusion [Unknown]
  - Product dose omission issue [Unknown]
  - Drug effective for unapproved indication [Unknown]

NARRATIVE: CASE EVENT DATE: 20200101
